FAERS Safety Report 4501152-5 (Version None)
Quarter: 2004Q4

REPORT INFORMATION
  Report Type: 
  Country: None (occurrence: None)
  Receive Date: 20041109
  Receipt Date: 20041026
  Transmission Date: 20050328
  Serious: Yes (Other)
  Sender: FDA-Public Use
  Company Number: EWC041041202

PATIENT
  Age: 37 Year
  Sex: Male
  Weight: 70 kg

DRUGS (1)
  1. CIALIS [Suspect]
     Indication: ERECTILE DYSFUNCTION
     Dosage: 40 MG
     Dates: start: 20040501, end: 20040501

REACTIONS (4)
  - CONDITION AGGRAVATED [None]
  - ERECTILE DYSFUNCTION [None]
  - PRIAPISM [None]
  - SELF-MEDICATION [None]
